FAERS Safety Report 22208786 (Version 1)
Quarter: 2023Q2

REPORT INFORMATION
  Report Type: Spontaneous
  Country: IN (occurrence: IN)
  Receive Date: 20230413
  Receipt Date: 20230413
  Transmission Date: 20230722
  Serious: Yes (Other)
  Sender: FDA-Public Use
  Company Number: IN-JNJFOC-20230404956

PATIENT
  Age: 18 Year
  Sex: Female

DRUGS (1)
  1. SIRTURO [Suspect]
     Active Substance: BEDAQUILINE FUMARATE
     Indication: Tuberculosis
     Route: 048

REACTIONS (4)
  - Myelin oligodendrocyte glycoprotein antibody-associated disease [Recovering/Resolving]
  - Paraparesis [Recovering/Resolving]
  - Bladder dysfunction [Recovering/Resolving]
  - Functional gastrointestinal disorder [Recovering/Resolving]
